FAERS Safety Report 18877902 (Version 2)
Quarter: 2021Q1

REPORT INFORMATION
  Report Type: Spontaneous
  Country: US (occurrence: US)
  Receive Date: 20210211
  Receipt Date: 20210303
  Transmission Date: 20210420
  Serious: Yes (Hospitalization, Other)
  Sender: FDA-Public Use
  Company Number: US-SA-2021SA044354

PATIENT
  Age: 57 Year
  Sex: Female

DRUGS (3)
  1. DUPIXENT [Suspect]
     Active Substance: DUPILUMAB
     Indication: DERMATITIS ATOPIC
     Dosage: 300 MG, QOW
     Route: 058
     Dates: start: 202011
  2. DUPIXENT [Suspect]
     Active Substance: DUPILUMAB
     Indication: IMMUNODEFICIENCY COMMON VARIABLE
  3. DUPIXENT [Suspect]
     Active Substance: DUPILUMAB
     Indication: HYPOGAMMAGLOBULINAEMIA

REACTIONS (14)
  - Pneumocystis jirovecii pneumonia [Unknown]
  - SARS-CoV-2 test [Unknown]
  - Chest pain [Unknown]
  - Fatigue [Unknown]
  - Arthralgia [Unknown]
  - COVID-19 [Unknown]
  - Chills [Unknown]
  - Dyspnoea [Unknown]
  - Cough [Unknown]
  - Oxygen saturation decreased [Unknown]
  - Urticaria [Unknown]
  - Product use in unapproved indication [Unknown]
  - Pyrexia [Unknown]
  - Body temperature decreased [Unknown]

NARRATIVE: CASE EVENT DATE: 202011
